FAERS Safety Report 9281430 (Version 1)
Quarter: 2013Q2

REPORT INFORMATION
  Report Type: Spontaneous
  Country: TR (occurrence: None)
  Receive Date: 20130502
  Receipt Date: 20130502
  Transmission Date: 20140414
  Serious: Yes (Hospitalization)
  Sender: FDA-Public Use
  Company Number: B0887940A

PATIENT
  Age: 60 Year
  Sex: Male

DRUGS (4)
  1. CARVEDILOL (FORMULATION UNKNOWN) (CARVEDILOL) [Suspect]
     Indication: PRODUCT USED FOR UNKNOWN INDICATION
  2. FACTIVE [Suspect]
     Indication: BRONCHITIS
  3. TAMSULOSIN HCL [Suspect]
     Indication: PRODUCT USED FOR UNKNOWN INDICATION
  4. ACE INHIBITOR [Suspect]
     Indication: PRODUCT USED FOR UNKNOWN INDICATION

REACTIONS (12)
  - Pruritus [None]
  - Hypoaesthesia [None]
  - Syncope [None]
  - Dysstasia [None]
  - Cold sweat [None]
  - Chills [None]
  - Local swelling [None]
  - Dyspnoea [None]
  - Hyperhidrosis [None]
  - Erythema [None]
  - Hypotension [None]
  - Anaphylactic reaction [None]
